FAERS Safety Report 6711280-1 (Version None)
Quarter: 2010Q2

REPORT INFORMATION
  Report Type: 
  Country: None (occurrence: None)
  Receive Date: 20100505
  Receipt Date: 20100429
  Transmission Date: 20101027
  Serious: Yes (Other)
  Sender: FDA-Public Use
  Company Number: FR-BRISTOL-MYERS SQUIBB COMPANY-15085707

PATIENT
  Age: 40 Year
  Sex: Female

DRUGS (2)
  1. BARACLUDE [Suspect]
  2. CORTICOSTEROID [Suspect]
     Dosage: THERAPY DURATION: MORE THAN A YEAR
     Dates: end: 20100401

REACTIONS (2)
  - DRUG EFFECT DECREASED [None]
  - OSTEONECROSIS [None]
